FAERS Safety Report 12625445 (Version 5)
Quarter: 2017Q2

REPORT INFORMATION
  Report Type: Spontaneous
  Country: FR (occurrence: FR)
  Receive Date: 20160805
  Receipt Date: 20170510
  Transmission Date: 20170830
  Serious: Yes (Hospitalization, Other)
  Sender: FDA-Public Use
  Company Number: FR-PFIZER INC-2016363876

PATIENT
  Age: 65 Year
  Sex: Male

DRUGS (19)
  1. FUROSEMIDE. [Suspect]
     Active Substance: FUROSEMIDE
     Dosage: 20 MG, 1X/DAY
     Route: 048
     Dates: end: 20160715
  2. UROREC [Suspect]
     Active Substance: SILODOSIN
     Dosage: 8 MG, 1X/DAY
     Route: 048
  3. TAHOR [Suspect]
     Active Substance: ATORVASTATIN CALCIUM
     Dosage: 10 MG, 1X/DAY
     Route: 048
  4. PANTOPRAZOLE [Suspect]
     Active Substance: PANTOPRAZOLE
     Dosage: 40 MG, 1X/DAY
     Route: 048
  5. TRAMADOL HYDROCHLORIDE. [Suspect]
     Active Substance: TRAMADOL HYDROCHLORIDE
     Dosage: 50 MG, 3X/DAY
     Route: 048
  6. CLOPIDOGREL BESILATE [Suspect]
     Active Substance: CLOPIDOGREL BESILATE
     Dosage: UNK
     Dates: start: 2015
  7. THERALENE [Suspect]
     Active Substance: TRIMEPRAZINE
     Dosage: 5 MG, 3X/DAY
     Route: 048
  8. FORADIL [Suspect]
     Active Substance: FORMOTEROL FUMARATE
     Dosage: UNK
     Route: 055
  9. SPIRIVA [Suspect]
     Active Substance: TIOTROPIUM BROMIDE MONOHYDRATE
     Dosage: UNK
     Route: 055
  10. LAROXYL [Suspect]
     Active Substance: AMITRIPTYLINE
     Dosage: 75 MG, 1X/DAY
     Route: 048
  11. NUCTALON [Suspect]
     Active Substance: ESTAZOLAM
     Dosage: 2 MG, 1X/DAY
     Route: 048
  12. TRAMADOL HYDROCHLORIDE. [Suspect]
     Active Substance: TRAMADOL HYDROCHLORIDE
     Dosage: 200 MG, 2X/DAY (IN THE MORNING AND IN THE EVENING)
     Route: 048
  13. DIAZEPAM. [Suspect]
     Active Substance: DIAZEPAM
     Dosage: 5 MG, 1X/DAY
     Route: 048
  14. TERCIAN /00759301/ [Suspect]
     Active Substance: CYAMEMAZINE
     Dosage: 25 MG, 1X/DAY
     Route: 048
  15. ARIPIPRAZOLE. [Suspect]
     Active Substance: ARIPIPRAZOLE
     Dosage: 10 MG, 1X/DAY
     Route: 065
  16. KARDEGIC [Suspect]
     Active Substance: ASPIRIN LYSINE
     Dosage: UNK
     Dates: start: 2015
  17. GARDENAL /00023201/ [Suspect]
     Active Substance: PHENOBARBITAL
     Dosage: 150 MG, 1X/DAY
     Route: 048
  18. GLYCERYL TRINITRATE [Suspect]
     Active Substance: NITROGLYCERIN
     Dosage: 1 DF, 1X/DAY
     Route: 003
  19. BISOCE [Suspect]
     Active Substance: BISOPROLOL
     Route: 048

REACTIONS (6)
  - Inappropriate antidiuretic hormone secretion [Not Recovered/Not Resolved]
  - Paraneoplastic syndrome [Unknown]
  - Chest pain [Unknown]
  - Pulmonary mass [Unknown]
  - Dry mouth [Unknown]
  - Hyponatraemia [Not Recovered/Not Resolved]

NARRATIVE: CASE EVENT DATE: 20160714
